FAERS Safety Report 14902952 (Version 2)
Quarter: 2018Q4

REPORT INFORMATION
  Report Type: Spontaneous
  Country: US (occurrence: US)
  Receive Date: 20180516
  Receipt Date: 20181106
  Transmission Date: 20190204
  Serious: No
  Sender: FDA-Public Use
  Company Number: US-SA-2017SA100494

PATIENT
  Age: 61 Year
  Sex: Female

DRUGS (5)
  1. SOLOSTAR [Suspect]
     Active Substance: DEVICE
     Dates: start: 2012
  2. LANTUS [Suspect]
     Active Substance: INSULIN GLARGINE
     Dosage: UNK UNK,BID
     Route: 051
     Dates: start: 2012
  3. LANTUS [Suspect]
     Active Substance: INSULIN GLARGINE
     Dosage: DOSE IS 95 UNITS IN AM (DIVIDED AS 45 UNITS AND 50 UNITS) AND 10 UNITS NIGHTLY
     Route: 065
  4. SOLOSTAR [Suspect]
     Active Substance: DEVICE
     Indication: TYPE 2 DIABETES MELLITUS
     Dates: start: 2012
  5. LANTUS [Suspect]
     Active Substance: INSULIN GLARGINE
     Indication: TYPE 2 DIABETES MELLITUS
     Dosage: 60AM/32PM
     Route: 051
     Dates: start: 2012

REACTIONS (5)
  - Device issue [Unknown]
  - Injury associated with device [Unknown]
  - Product use issue [Unknown]
  - Product use issue [Unknown]
  - Device operational issue [Unknown]

NARRATIVE: CASE EVENT DATE: 2012
